FAERS Safety Report 18771357 (Version 7)
Quarter: 2022Q1

REPORT INFORMATION
  Report Type: Report from Study
  Country: US (occurrence: US)
  Receive Date: 20210121
  Receipt Date: 20220310
  Transmission Date: 20220423
  Serious: No
  Sender: FDA-Public Use
  Company Number: NVSC2021US013467

PATIENT
  Sex: Female

DRUGS (2)
  1. MAYZENT [Suspect]
     Active Substance: SIPONIMOD
     Indication: Multiple sclerosis
     Dosage: 2 MG, QD
     Route: 048
  2. MAYZENT [Suspect]
     Active Substance: SIPONIMOD
     Dosage: 2 MG, QD
     Route: 048

REACTIONS (10)
  - Migraine [Recovering/Resolving]
  - Vertigo [Unknown]
  - Limb injury [Unknown]
  - Muscular weakness [Unknown]
  - Cognitive disorder [Unknown]
  - Fall [Unknown]
  - Nausea [Unknown]
  - Dizziness [Unknown]
  - Product distribution issue [Unknown]
  - COVID-19 [Recovering/Resolving]
